FAERS Safety Report 17325734 (Version 4)
Quarter: 2020Q1

REPORT INFORMATION
  Report Type: Spontaneous
  Country: LB (occurrence: LB)
  Receive Date: 20200127
  Receipt Date: 20200320
  Transmission Date: 20200409
  Serious: Yes (Other)
  Sender: FDA-Public Use
  Company Number: NVSC2020LB015190

PATIENT
  Age: 40 Year
  Sex: Female

DRUGS (1)
  1. GILENYA [Suspect]
     Active Substance: FINGOLIMOD HYDROCHLORIDE
     Indication: RELAPSING-REMITTING MULTIPLE SCLEROSIS
     Dosage: 0.5 MG, QD
     Route: 048
     Dates: end: 20200109

REACTIONS (9)
  - Muscular weakness [Unknown]
  - Brain abscess [Recovered/Resolved with Sequelae]
  - C-reactive protein abnormal [Unknown]
  - Paresis [Recovered/Resolved with Sequelae]
  - Secondary progressive multiple sclerosis [Not Recovered/Not Resolved]
  - Generalised tonic-clonic seizure [Unknown]
  - White blood cell count increased [Unknown]
  - Hemiparesis [Recovered/Resolved with Sequelae]
  - Facial neuralgia [Unknown]

NARRATIVE: CASE EVENT DATE: 20200111
